FAERS Safety Report 8881845 (Version 2)
Quarter: 2014Q1

REPORT INFORMATION
  Report Type: Spontaneous
  Country: US (occurrence: US)
  Receive Date: 20121105
  Receipt Date: 20140228
  Transmission Date: 20141002
  Serious: Yes (Other)
  Sender: FDA-Public Use
  Company Number: US-BAYER-2012-114021

PATIENT
  Age: 32 Year
  Sex: Female

DRUGS (1)
  1. MIRENA [Suspect]
     Indication: CONTRACEPTION
     Dosage: 20 MCG/24HR, CONT
     Route: 015
     Dates: end: 20121022

REACTIONS (8)
  - Pain [None]
  - Haemorrhage in pregnancy [None]
  - Vaginal haemorrhage [None]
  - Pregnancy with contraceptive device [Recovered/Resolved]
  - Drug ineffective [None]
  - Menstruation irregular [None]
  - Abortion spontaneous [Recovered/Resolved]
  - Ectopic pregnancy with contraceptive device [Recovered/Resolved]
